FAERS Safety Report 16424030 (Version 4)
Quarter: 2020Q4

REPORT INFORMATION
  Report Type: Report from Study
  Country: US (occurrence: US)
  Receive Date: 20190613
  Receipt Date: 20201016
  Transmission Date: 20210113
  Serious: Yes (Hospitalization, Other)
  Sender: FDA-Public Use
  Company Number: US-ROCHE-2335620

PATIENT
  Age: 75 Year
  Sex: Female

DRUGS (12)
  1. RANIBIZUMAB. [Suspect]
     Active Substance: RANIBIZUMAB
     Indication: AGE-RELATED MACULAR DEGENERATION
     Route: 050
  2. MINOXIDIL. [Concomitant]
     Active Substance: MINOXIDIL
     Dates: start: 2012
  3. HUMULIN N [Concomitant]
     Active Substance: INSULIN HUMAN
     Dates: start: 2016
  4. TRIAMTERENE HCTZ [Concomitant]
     Active Substance: HYDROCHLOROTHIAZIDE\TRIAMTERENE
     Dates: start: 2012
  5. D3 VITAMIN [Concomitant]
  6. ACICLOVIR [Concomitant]
     Active Substance: ACYCLOVIR
     Dates: start: 1980
  7. LOSARTAN. [Concomitant]
     Active Substance: LOSARTAN
     Dates: start: 2000
  8. ALBUTEROL. [Concomitant]
     Active Substance: ALBUTEROL
     Dates: start: 2007
  9. HUMALOG [Concomitant]
     Active Substance: INSULIN LISPRO
     Dates: start: 2003
  10. ZYRTEC (UNITED STATES) [Concomitant]
     Dates: start: 2015
  11. SIMVASTATIN. [Concomitant]
     Active Substance: SIMVASTATIN
     Dates: start: 2007
  12. LEVOTHYROXINE. [Concomitant]
     Active Substance: LEVOTHYROXINE
     Dates: start: 1987

REACTIONS (3)
  - Angina unstable [Recovering/Resolving]
  - Coronary artery disease [Recovering/Resolving]
  - Chest pain [Unknown]

NARRATIVE: CASE EVENT DATE: 20190402
